FAERS Safety Report 6480810-X (Version None)
Quarter: 2009Q4

REPORT INFORMATION
  Report Type: 
  Country: None (occurrence: None)
  Receive Date: 20091208
  Receipt Date: 20091203
  Transmission Date: 20100525
  Serious: Yes (Congenital Anomaly)
  Sender: FDA-Public Use
  Company Number: GB-TEVA-217072ISR

PATIENT
  Sex: Female
  Weight: 0.79 kg

DRUGS (2)
  1. LAMOTRIGINE [Suspect]
     Route: 064
  2. LEVETIRACETAM [Suspect]
     Route: 064

REACTIONS (2)
  - CENTRAL NERVOUS SYSTEM LESION [None]
  - EXOMPHALOS [None]
